APPROVED DRUG PRODUCT: FLUOCINONIDE
Active Ingredient: FLUOCINONIDE
Strength: 0.05%
Dosage Form/Route: CREAM;TOPICAL
Application: A071790 | Product #001
Applicant: PERRIGO NEW YORK INC
Approved: Jul 13, 1988 | RLD: No | RS: No | Type: DISCN